FAERS Safety Report 23463790 (Version 1)
Quarter: 2024Q1

REPORT INFORMATION
  Report Type: Spontaneous
  Country: US (occurrence: US)
  Receive Date: 20240201
  Receipt Date: 20240201
  Transmission Date: 20240410
  Serious: No
  Sender: FDA-Public Use
  Company Number: US-AMNEAL PHARMACEUTICALS-2023-AMRX-04485

PATIENT
  Sex: Male

DRUGS (1)
  1. ATROPINE SULFATE [Suspect]
     Active Substance: ATROPINE SULFATE
     Indication: Product used for unknown indication
     Dosage: 1 PERCENT, 2 DROP, ONE DROP UNDER YOUR TONGUE IN THE MORNING AND IN THE EVENING
     Route: 048

REACTIONS (2)
  - Incorrect route of product administration [Unknown]
  - No adverse event [Unknown]
